FAERS Safety Report 12583415 (Version 3)
Quarter: 2016Q3

REPORT INFORMATION
  Report Type: Spontaneous
  Country: US (occurrence: US)
  Receive Date: 20160722
  Receipt Date: 20160831
  Transmission Date: 20161109
  Serious: Yes (Other)
  Sender: FDA-Public Use
  Company Number: US-PFIZER INC-2016354008

PATIENT
  Age: 49 Year
  Sex: Male
  Weight: 111 kg

DRUGS (3)
  1. CHANTIX [Suspect]
     Active Substance: VARENICLINE TARTRATE
     Indication: SMOKING CESSATION THERAPY
     Dosage: UNK
     Dates: start: 2005, end: 2005
  2. CHANTIX [Suspect]
     Active Substance: VARENICLINE TARTRATE
     Dosage: UNK
  3. HUMIRA [Suspect]
     Active Substance: ADALIMUMAB
     Indication: OSTEOARTHRITIS
     Dosage: UNK
     Dates: start: 20070601

REACTIONS (1)
  - Lung neoplasm malignant [Recovered/Resolved]

NARRATIVE: CASE EVENT DATE: 20070626
